FAERS Safety Report 5034213-5 (Version None)
Quarter: 2006Q2

REPORT INFORMATION
  Report Type: 
  Country: None (occurrence: None)
  Receive Date: 20060626
  Receipt Date: 20060616
  Transmission Date: 20061013
  Serious: Yes (Hospitalization)
  Sender: FDA-Public Use
  Company Number: FR-GLAXOSMITHKLINE-B0428115A

PATIENT
  Age: 35 Year
  Sex: Female

DRUGS (2)
  1. LAMICTAL [Suspect]
     Dosage: 25MG PER DAY
     Route: 048
     Dates: start: 20060331, end: 20060428
  2. SPECIAFOLDINE [Concomitant]
     Route: 065

REACTIONS (10)
  - COUGH [None]
  - CSF GLUCOSE ABNORMAL [None]
  - CSF PROTEIN INCREASED [None]
  - DRUG EXPOSURE DURING PREGNANCY [None]
  - HYPERSENSITIVITY [None]
  - MENINGITIS [None]
  - MUSCULOSKELETAL STIFFNESS [None]
  - PYREXIA [None]
  - TACHYPNOEA [None]
  - VOMITING [None]
